FAERS Safety Report 8349094 (Version 3)
Quarter: 2012Q4

REPORT INFORMATION
  Report Type: Report from Study
  Country: DE (occurrence: DE)
  Receive Date: 20120123
  Receipt Date: 20121113
  Transmission Date: 20130627
  Serious: Yes (Hospitalization)
  Sender: FDA-Public Use
  Company Number: DE-ABBOTT-12P-062-0895352-00

PATIENT
  Age: 42 Year
  Sex: Female

DRUGS (2)
  1. HUMIRA [Suspect]
     Indication: CROHN^S DISEASE
     Dosage: once
     Route: 058
     Dates: start: 20120106, end: 20120106
  2. AZATHIOPRINE [Concomitant]
     Indication: CROHN^S DISEASE

REACTIONS (4)
  - Pyrexia [Not Recovered/Not Resolved]
  - Small intestinal resection [Recovering/Resolving]
  - Gastrointestinal fistula [Recovering/Resolving]
  - Abscess intestinal [Recovering/Resolving]
